FAERS Safety Report 7224921-X (Version None)
Quarter: 2011Q1

REPORT INFORMATION
  Report Type: 
  Country: None (occurrence: None)
  Receive Date: 20110113
  Receipt Date: 20110104
  Transmission Date: 20110831
  Serious: Yes (Hospitalization)
  Sender: FDA-Public Use
  Company Number: NL-MEDIMMUNE-MEDI-0012163

PATIENT
  Sex: Male
  Weight: 5.4 kg

DRUGS (4)
  1. SODIUM POTASSIUM BEVERAGE [Concomitant]
     Dates: start: 20100101
  2. SYNAGIS [Suspect]
     Route: 030
     Dates: start: 20101012, end: 20110104
  3. ERGOCALCIFEROL [Concomitant]
     Dates: start: 20100101
  4. IRON [Concomitant]
     Dates: start: 20100101

REACTIONS (5)
  - RHINORRHOEA [None]
  - CYANOSIS [None]
  - NASOPHARYNGITIS [None]
  - SENSE OF OPPRESSION [None]
  - NASAL CONGESTION [None]
